FAERS Safety Report 13628134 (Version 1)
Quarter: 2017Q2

REPORT INFORMATION
  Report Type: Spontaneous
  Country: US (occurrence: US)
  Receive Date: 20170608
  Receipt Date: 20170608
  Transmission Date: 20170830
  Serious: No
  Sender: FDA-Public Use
  Company Number: US-PERRIGO-17US000844

PATIENT
  Age: 65 Year
  Sex: Male
  Weight: 76.19 kg

DRUGS (1)
  1. MINOXIDIL. [Suspect]
     Active Substance: MINOXIDIL
     Indication: ALOPECIA
     Dosage: 1/2 CAPFUL, BID
     Route: 061
     Dates: start: 201605, end: 201608

REACTIONS (4)
  - Application site exfoliation [Recovering/Resolving]
  - Drug administered at inappropriate site [Recovered/Resolved]
  - Off label use [Recovered/Resolved]
  - Application site pruritus [Recovering/Resolving]

NARRATIVE: CASE EVENT DATE: 201605
